FAERS Safety Report 18806431 (Version 1)
Quarter: 2021Q1

REPORT INFORMATION
  Report Type: Report from Study
  Country: GB (occurrence: GB)
  Receive Date: 20210128
  Receipt Date: 20210128
  Transmission Date: 20210419
  Serious: Yes (Other)
  Sender: FDA-Public Use
  Company Number: GB-GILEAD-2021-0514846

PATIENT
  Sex: Female

DRUGS (3)
  1. EMTRICITABINE/RILPIVIRINE/TENOFOVIR ALAFENAMIDE [Suspect]
     Active Substance: EMTRICITABINE\RILPIVIRINE HYDROCHLORIDE\TENOFOVIR ALAFENAMIDE FUMARATE
     Indication: PRODUCT USED FOR UNKNOWN INDICATION
     Dosage: 1 DOSAGE FORM
     Route: 048
  2. DARUNAVIR [Concomitant]
     Active Substance: DARUNAVIR
  3. RITONAVIR. [Concomitant]
     Active Substance: RITONAVIR

REACTIONS (2)
  - Multiple fractures [Recovering/Resolving]
  - Degenerative bone disease [Recovering/Resolving]
